FAERS Safety Report 6458244-3 (Version None)
Quarter: 2009Q4

REPORT INFORMATION
  Report Type: 
  Country: None (occurrence: None)
  Receive Date: 20091125
  Receipt Date: 20091123
  Transmission Date: 20100525
  Serious: Yes (Hospitalization)
  Sender: FDA-Public Use
  Company Number: FR-MERCK-0911FRA00079

PATIENT
  Age: 33 Year
  Sex: Female

DRUGS (18)
  1. STROMECTOL [Suspect]
     Route: 048
     Dates: start: 20090806, end: 20090806
  2. ISONIAZID [Suspect]
     Indication: TUBERCULOSIS
     Route: 048
     Dates: start: 20090730
  3. RIFAMPIN [Suspect]
     Indication: TUBERCULOSIS
     Route: 048
     Dates: start: 20090730
  4. ETHAMBUTOL HYDROCHLORIDE [Suspect]
     Indication: TUBERCULOSIS
     Route: 048
     Dates: start: 20090730
  5. PYRAZINAMIDE [Suspect]
     Indication: TUBERCULOSIS
     Route: 048
     Dates: start: 20090730
  6. ACETAMINOPHEN AND TRAMADOL HCL [Suspect]
     Route: 048
     Dates: start: 20090730, end: 20090801
  7. CEFTRIAXONE [Suspect]
     Route: 042
     Dates: start: 20090728, end: 20090729
  8. NEFOPAM HYDROCHLORIDE [Suspect]
     Route: 042
     Dates: start: 20090728, end: 20090701
  9. ACETAMINOPHEN [Suspect]
     Indication: PYREXIA
     Route: 042
     Dates: start: 20090728, end: 20090701
  10. IBUPROFEN [Suspect]
     Route: 048
     Dates: start: 20090721, end: 20090701
  11. ASCORBIC ACID AND VITAMIN B COMPLEX [Suspect]
     Route: 048
     Dates: start: 20090721, end: 20090701
  12. PYRIDOXINE AND THIAMINE [Suspect]
     Route: 048
     Dates: start: 20090731
  13. TRAMADOL HCL [Suspect]
     Route: 048
     Dates: start: 20090810, end: 20090825
  14. DESLORATADINE [Concomitant]
     Route: 048
     Dates: start: 20090721, end: 20090728
  15. DESLORATADINE [Concomitant]
     Route: 048
     Dates: start: 20090827
  16. LAMIVUDINE [Concomitant]
     Indication: HEPATITIS B
     Route: 048
     Dates: start: 20060101
  17. FLOCTAFENINE [Concomitant]
     Route: 048
  18. ETHINYL ESTRADIOL AND LEVONORGESTREL [Concomitant]
     Route: 048

REACTIONS (3)
  - DRUG ERUPTION [None]
  - PRURITUS [None]
  - SKIN EXFOLIATION [None]
